FAERS Safety Report 5858374-0 (Version None)
Quarter: 2008Q3

REPORT INFORMATION
  Report Type: 
  Country: None (occurrence: None)
  Receive Date: 20080822
  Receipt Date: 20080807
  Transmission Date: 20090109
  Serious: Yes (Life-Threatening, Hospitalization, Other)
  Sender: FDA-Public Use
  Company Number: 2004IC000166

PATIENT
  Age: 34 Year
  Sex: Female

DRUGS (1)
  1. FLUCYTOSINE (FLUCYTOSINE) (500 MG) [Suspect]
     Indication: GENITAL CANDIDIASIS
     Dosage: 500 MG; 12X/D; ORAL
     Route: 048

REACTIONS (5)
  - CARDIOTOXICITY [None]
  - CHEST PAIN [None]
  - EJECTION FRACTION DECREASED [None]
  - ELECTROCARDIOGRAM ST SEGMENT ELEVATION [None]
  - VENTRICULAR HYPOKINESIA [None]
